FAERS Safety Report 9718058 (Version 1)
Quarter: 2013Q4

REPORT INFORMATION
  Report Type: Spontaneous
  Country: LB (occurrence: LB)
  Receive Date: 20131127
  Receipt Date: 20131127
  Transmission Date: 20140711
  Serious: Yes (Death, Hospitalization)
  Sender: FDA-Public Use
  Company Number: LB-ABBVIE-13P-093-1173757-00

PATIENT
  Age: 43 Year
  Sex: Female
  Weight: 42 kg

DRUGS (1)
  1. HUMIRA [Suspect]
     Indication: CROHN^S DISEASE
     Dosage: 160/80 MG, THEN 40 MG EOW
     Route: 058
     Dates: start: 201209, end: 201310

REACTIONS (3)
  - Colectomy [Fatal]
  - Abdominal pain [Not Recovered/Not Resolved]
  - Infection [Not Recovered/Not Resolved]
